FAERS Safety Report 7527554-0 (Version None)
Quarter: 2011Q2

REPORT INFORMATION
  Report Type: 
  Country: None (occurrence: None)
  Receive Date: 20110607
  Receipt Date: 20110531
  Transmission Date: 20111010
  Serious: No
  Sender: FDA-Public Use
  Company Number: US-PFIZER INC-2011118484

PATIENT
  Sex: Female
  Weight: 106 kg

DRUGS (2)
  1. CRESTOR [Concomitant]
     Indication: BLOOD CHOLESTEROL ABNORMAL
     Dosage: UNK, DAILY
     Route: 048
  2. ADVIL LIQUI-GELS [Suspect]
     Indication: ARTHRITIS
     Dosage: 3-4 TABLETS AFTER EVERY 6 HOURS
     Route: 048
     Dates: start: 20010101

REACTIONS (2)
  - OVERDOSE [None]
  - OEDEMA PERIPHERAL [None]
